FAERS Safety Report 5932870-X (Version None)
Quarter: 2008Q4

REPORT INFORMATION
  Report Type: 
  Country: None (occurrence: None)
  Receive Date: 20081027
  Receipt Date: 20081027
  Transmission Date: 20090506
  Serious: Yes (Other)
  Sender: FDA-Public Use
  Company Number: None

PATIENT
  Age: 67 Year
  Sex: Male
  Weight: 104.3273 kg

DRUGS (1)
  1. LEVITRA [Suspect]
     Indication: SEXUAL DYSFUNCTION
     Dosage: 1 1 A DAY
     Dates: start: 20060606, end: 20061019

REACTIONS (1)
  - DEAFNESS [None]
